FAERS Safety Report 4409744-9 (Version None)
Quarter: 2004Q3

REPORT INFORMATION
  Report Type: 
  Country: None (occurrence: None)
  Receive Date: 20040723
  Receipt Date: 20040712
  Transmission Date: 20050211
  Serious: Yes (Life-Threatening, Disabling, Other)
  Sender: FDA-Public Use
  Company Number: HQWYE581312JUN03

PATIENT
  Age: 52 Year

DRUGS (4)
  1. EFFEXOR XR [Suspect]
     Indication: DEPRESSION
     Dosage: SEE IMAGE ORAL
     Route: 048
     Dates: start: 20040101, end: 20040101
  2. EFFEXOR XR [Suspect]
     Indication: DEPRESSION
     Dosage: SEE IMAGE ORAL
     Route: 048
     Dates: start: 20040101, end: 20040101
  3. EFFEXOR XR [Suspect]
     Indication: DEPRESSION
     Dosage: SEE IMAGE ORAL
     Route: 048
     Dates: end: 20040401
  4. EFFEXOR XR [Suspect]
     Indication: DEPRESSION
     Dosage: SEE IMAGE ORAL
     Route: 048
     Dates: start: 20020101

REACTIONS (31)
  - AGGRESSION [None]
  - AMNESIA [None]
  - ANGER [None]
  - ARTHRALGIA [None]
  - ARTHRITIS INFECTIVE [None]
  - BACK DISORDER [None]
  - BONE PAIN [None]
  - BRUXISM [None]
  - CRYING [None]
  - DECREASED INTEREST [None]
  - DENTAL CARIES [None]
  - DEPRESSION [None]
  - DRUG EFFECT DECREASED [None]
  - DRUG WITHDRAWAL SYNDROME [None]
  - FATIGUE [None]
  - FEELING ABNORMAL [None]
  - FLASHBACK [None]
  - HYPOAESTHESIA [None]
  - IRRITABILITY [None]
  - MEMORY IMPAIRMENT [None]
  - MOOD ALTERED [None]
  - MORBID THOUGHTS [None]
  - MUSCLE DISORDER [None]
  - MYALGIA [None]
  - NERVOUS SYSTEM DISORDER [None]
  - NIGHTMARE [None]
  - SUICIDAL IDEATION [None]
  - TEETH BRITTLE [None]
  - TOOTH LOSS [None]
  - VISION BLURRED [None]
  - VISUAL ACUITY REDUCED [None]
